FAERS Safety Report 10894905 (Version 1)
Quarter: 2015Q1

REPORT INFORMATION
  Report Type: Spontaneous
  Country: US (occurrence: US)
  Receive Date: 20150306
  Receipt Date: 20150306
  Transmission Date: 20150721
  Serious: No
  Sender: FDA-Public Use
  Company Number: US-AMGEN-USASP2014049875

PATIENT
  Age: 75 Year
  Sex: Male
  Weight: 72.5 kg

DRUGS (1)
  1. SENSIPAR [Suspect]
     Active Substance: CINACALCET HYDROCHLORIDE
     Indication: PRODUCT USED FOR UNKNOWN INDICATION
     Dosage: 30, QD
     Route: 048
     Dates: start: 20120902, end: 201406

REACTIONS (1)
  - Diarrhoea [Recovered/Resolved]
